FAERS Safety Report 9254758 (Version 1)
Quarter: 2013Q2

REPORT INFORMATION
  Report Type: Spontaneous
  Country: US (occurrence: None)
  Receive Date: 20130422
  Receipt Date: 20130422
  Transmission Date: 20140414
  Serious: Yes (Hospitalization)
  Sender: FDA-Public Use
  Company Number: None

PATIENT
  Age: 25 Year
  Sex: Male
  Weight: 92.8 kg

DRUGS (2)
  1. ROPIVACAINE [Suspect]
     Indication: ANAESTHESIA
     Dosage: 150 MCG  ONCE
     Dates: start: 20130103, end: 20130103
  2. LIDOCAINE [Suspect]
     Indication: ANAESTHESIA
     Dosage: ONCE  TOP
     Route: 061
     Dates: start: 20130103, end: 20130103

REACTIONS (1)
  - Drug hypersensitivity [None]
